FAERS Safety Report 9295117 (Version 2)
Quarter: 2013Q2

REPORT INFORMATION
  Report Type: Spontaneous
  Country: FR (occurrence: FR)
  Receive Date: 20130517
  Receipt Date: 20130523
  Transmission Date: 20140414
  Serious: Yes (Hospitalization)
  Sender: FDA-Public Use
  Company Number: FR-JNJFOC-20130505864

PATIENT
  Age: 66 Year
  Sex: Male

DRUGS (22)
  1. DOXORUBICIN HYDROCHLORIDE (CAELYX) [Suspect]
     Indication: PLASMA CELL MYELOMA
     Route: 065
     Dates: start: 20110502
  2. BENDAMUSTINE [Suspect]
     Indication: PRODUCT USED FOR UNKNOWN INDICATION
     Route: 065
     Dates: start: 20120716, end: 20120717
  3. VELCADE [Suspect]
     Indication: PLASMA CELL MYELOMA
     Route: 042
     Dates: start: 20121119
  4. VELCADE [Suspect]
     Indication: PLASMA CELL MYELOMA
     Route: 042
     Dates: start: 20110627
  5. VELCADE [Suspect]
     Indication: PLASMA CELL MYELOMA
     Route: 042
     Dates: start: 20100906
  6. VELCADE [Suspect]
     Indication: PLASMA CELL MYELOMA
     Route: 042
     Dates: start: 20101125
  7. VELCADE [Suspect]
     Indication: PLASMA CELL MYELOMA
     Route: 042
     Dates: start: 20110429
  8. VELCADE [Suspect]
     Indication: PLASMA CELL MYELOMA
     Route: 058
     Dates: start: 20130307, end: 20130318
  9. VELCADE [Suspect]
     Indication: PLASMA CELL MYELOMA
     Route: 058
  10. DEXAMETHASONE [Suspect]
     Indication: PLASMA CELL MYELOMA
     Route: 042
     Dates: start: 20110627
  11. DEXAMETHASONE [Suspect]
     Indication: PLASMA CELL MYELOMA
     Route: 042
     Dates: start: 20100906
  12. DEXAMETHASONE [Suspect]
     Indication: PLASMA CELL MYELOMA
     Route: 042
     Dates: start: 20101125
  13. DEXAMETHASONE [Suspect]
     Indication: PLASMA CELL MYELOMA
     Route: 042
     Dates: start: 20121119
  14. DEXAMETHASONE [Suspect]
     Indication: PLASMA CELL MYELOMA
     Route: 058
     Dates: start: 20121119
  15. DEXAMETHASONE [Suspect]
     Indication: PLASMA CELL MYELOMA
     Route: 058
     Dates: start: 20130307, end: 20130318
  16. NEODEX [Suspect]
     Indication: PRODUCT USED FOR UNKNOWN INDICATION
     Route: 065
     Dates: start: 20100906, end: 20130318
  17. MELPHALAN [Suspect]
     Indication: PRODUCT USED FOR UNKNOWN INDICATION
     Route: 065
     Dates: start: 20110820
  18. CYMBALTA [Concomitant]
     Indication: PRODUCT USED FOR UNKNOWN INDICATION
     Route: 065
  19. OXYNORM [Concomitant]
     Indication: PRODUCT USED FOR UNKNOWN INDICATION
     Route: 065
  20. OXYCONTIN [Concomitant]
     Indication: PRODUCT USED FOR UNKNOWN INDICATION
     Route: 065
  21. ZELITREX [Concomitant]
     Indication: PRODUCT USED FOR UNKNOWN INDICATION
     Route: 065
  22. LYRICA [Concomitant]
     Indication: PRODUCT USED FOR UNKNOWN INDICATION
     Route: 065

REACTIONS (3)
  - Leukoencephalopathy [Not Recovered/Not Resolved]
  - Confusional state [Not Recovered/Not Resolved]
  - Gait disturbance [Not Recovered/Not Resolved]
